FAERS Safety Report 10184260 (Version 1)
Quarter: 2014Q2

REPORT INFORMATION
  Report Type: Spontaneous
  Country: US (occurrence: US)
  Receive Date: 20140520
  Receipt Date: 20140520
  Transmission Date: 20141212
  Serious: No
  Sender: FDA-Public Use
  Company Number: US-ASTRAZENECA-2013SE65614

PATIENT
  Age: 45 Year
  Sex: Male
  Weight: 83.5 kg

DRUGS (2)
  1. RHINOCORT [Suspect]
     Indication: MULTIPLE ALLERGIES
     Dosage: 1 SPRAY EACH NOSTRIL DAILY
     Route: 045
  2. LISINOPRIL HCTZ [Suspect]
     Indication: HYPERTENSION
     Dosage: 20 MG +12.5 MG DAILY
     Route: 048

REACTIONS (5)
  - Nasal congestion [Not Recovered/Not Resolved]
  - Sneezing [Not Recovered/Not Resolved]
  - Hypertension [Not Recovered/Not Resolved]
  - Hypersensitivity [Not Recovered/Not Resolved]
  - Intentional product misuse [Not Recovered/Not Resolved]
